FAERS Safety Report 7644374-7 (Version None)
Quarter: 2011Q3

REPORT INFORMATION
  Report Type: 
  Country: None (occurrence: None)
  Receive Date: 20110729
  Receipt Date: 20110718
  Transmission Date: 20111222
  Serious: Yes (Other)
  Sender: FDA-Public Use
  Company Number: JP-TEVA-291793ISR

PATIENT
  Age: 61 Year
  Sex: Male

DRUGS (6)
  1. HYDANTOL F [Interacting]
     Dosage: 150 MILLIGRAM;
  2. DIAZEPAM [Concomitant]
     Indication: CONVULSION
     Dosage: 15 MILLIGRAM;
  3. CISPLATIN [Suspect]
     Indication: GASTRIC CANCER
     Dosage: OVER 2 HOURS ON DAY 8
     Route: 042
     Dates: start: 20080101, end: 20080101
  4. HYDANTOL F [Interacting]
     Indication: CONVULSION
     Dosage: 225 MILLIGRAM;
  5. S-1 (GIMERACIL, OTERACIL POTASSIUM, TEGAFUR) [Interacting]
     Indication: GASTRIC CANCER
     Route: 042
     Dates: start: 20080101, end: 20080101
  6. VALERIN [Concomitant]
     Dosage: 600 MILLIGRAM;

REACTIONS (2)
  - TOXICITY TO VARIOUS AGENTS [None]
  - DRUG INTERACTION [None]
